FAERS Safety Report 7593304-5 (Version None)
Quarter: 2011Q3

REPORT INFORMATION
  Report Type: 
  Country: None (occurrence: None)
  Receive Date: 20110706
  Receipt Date: 20110625
  Transmission Date: 20111222
  Serious: Yes (Hospitalization)
  Sender: FDA-Public Use
  Company Number: JP-TYCO HEALTHCARE/MALLINCKRODT-T201101298

PATIENT
  Sex: Male
  Weight: 65 kg

DRUGS (16)
  1. MAGMITT [Concomitant]
     Dosage: 330 MG, TID
     Dates: start: 20110508
  2. SELTOUCH [Concomitant]
     Dosage: 1 SHEET BID
     Dates: start: 20110624
  3. MS-TWICELON [Concomitant]
     Dosage: UNK
     Dates: end: 20110529
  4. METHADONE HCL [Suspect]
     Dosage: 15 MG, QD
     Route: 048
     Dates: start: 20110625
  5. CELECOXIB [Concomitant]
     Dosage: 100 MG, BID
     Dates: start: 20110415
  6. METHADONE HCL [Suspect]
     Indication: CANCER PAIN
     Dosage: 20 MG, QD
     Route: 048
     Dates: start: 20110602, end: 20110614
  7. MORPHINE [Concomitant]
     Indication: CANCER PAIN
     Dosage: 10 MG, PRN
     Dates: start: 20110411
  8. ANNACA                             /00190001/ [Concomitant]
     Dosage: 0.2 G, BID
     Dates: start: 20110620
  9. PROCHLORPERAZINE [Concomitant]
     Indication: NAUSEA
     Dosage: 5 MG, TID
     Dates: start: 20110606
  10. PROCHLORPERAZINE [Concomitant]
     Dosage: 5 MG, PRN
     Dates: start: 20110610
  11. HIRUDOID                           /00723701/ [Concomitant]
     Indication: ECZEMA ASTEATOTIC
     Dosage: ADEQUATE DOSE AS NEEDED
     Dates: start: 20110601
  12. METHADONE HCL [Suspect]
     Dosage: 10 MG, QD
     Route: 048
     Dates: start: 20110615, end: 20110624
  13. IRESSA [Concomitant]
     Dosage: 250 MG QD EVERY SECOND DAY
     Dates: start: 20110516
  14. METHADONE HCL [Suspect]
     Dosage: 15 MG, QD
     Route: 048
     Dates: start: 20110529, end: 20110601
  15. SENNARIDE [Concomitant]
     Dosage: 24 MG, QD
     Dates: start: 20110411
  16. TRAVELMIN                          /00517301/ [Concomitant]
     Indication: NAUSEA
     Dosage: 1 TABLET AS NEEDED
     Dates: start: 20110616

REACTIONS (1)
  - MALAISE [None]
